FAERS Safety Report 9757251 (Version 1)
Quarter: 2013Q4

REPORT INFORMATION
  Report Type: Report from Study
  Country: FR (occurrence: FR)
  Receive Date: 20131213
  Receipt Date: 20131213
  Transmission Date: 20140711
  Serious: Yes (Hospitalization)
  Sender: FDA-Public Use
  Company Number: FR-ASTRAZENECA-2013SE89391

PATIENT
  Age: 444 Month
  Sex: Male
  Weight: 67 kg

DRUGS (6)
  1. XEROQUEL [Suspect]
     Indication: SCHIZOPHRENIA
     Route: 048
     Dates: start: 20130320, end: 20130910
  2. SERTRALINE [Concomitant]
     Route: 048
     Dates: start: 20100301
  3. SERTRALINE [Concomitant]
     Route: 048
     Dates: start: 20100303
  4. RISPERDAL [Concomitant]
     Dates: start: 20100303, end: 20130320
  5. VENLAFAXINE [Concomitant]
     Route: 048
     Dates: start: 20100601, end: 20130402
  6. XEPLION [Concomitant]
     Dates: start: 20130910

REACTIONS (2)
  - Delusion [Recovering/Resolving]
  - Treatment noncompliance [Unknown]
